FAERS Safety Report 24761132 (Version 1)
Quarter: 2024Q4

REPORT INFORMATION
  Report Type: Spontaneous
  Country: MY (occurrence: MY)
  Receive Date: 20241220
  Receipt Date: 20241220
  Transmission Date: 20250114
  Serious: Yes (Other)
  Sender: NOVARTIS
  Company Number: MY-002147023-NVSC2024MY241299

PATIENT
  Sex: Female

DRUGS (8)
  1. OCTREOTIDE [Suspect]
     Active Substance: OCTREOTIDE
     Indication: Congenital hyperinsulinaemic hypoglycaemia
     Dosage: 8.8 ?G/KG, QD
     Route: 058
  2. OCTREOTIDE [Suspect]
     Active Substance: OCTREOTIDE
     Dosage: 10 ?G/KG, QD, IN DIVIDED DOSES
     Route: 058
  3. OCTREOTIDE [Suspect]
     Active Substance: OCTREOTIDE
     Dosage: 12 ?G/KG, QD
     Route: 058
  4. DIAZOXIDE [Concomitant]
     Active Substance: DIAZOXIDE
     Indication: Congenital hyperinsulinaemic hypoglycaemia
     Dosage: 2 MG/KG, QD (THREE DIVIDED DOSES AND THE DOSE WAS INCREASED EVERY 2 DAYS)
     Route: 048
  5. DIAZOXIDE [Concomitant]
     Active Substance: DIAZOXIDE
     Dosage: 20 MG/KG, QD
     Route: 048
  6. DEXTROSE [Concomitant]
     Active Substance: DEXTROSE MONOHYDRATE
     Indication: Hypoglycaemia neonatal
     Dosage: 2 MILLILITRE PER KILOGRAM
     Route: 040
  7. GLUCAGON [Concomitant]
     Active Substance: GLUCAGON
     Indication: Hypoglycaemia neonatal
     Dosage: 10 ?G/KG (1 MIN)
     Route: 042
  8. HYDROCORTISONE [Concomitant]
     Active Substance: HYDROCORTISONE
     Indication: Hypoglycaemia neonatal
     Dosage: 1 MG/KG, TID
     Route: 065

REACTIONS (1)
  - Hepatic enzyme increased [Recovered/Resolved]
